FAERS Safety Report 23607357 (Version 2)
Quarter: 2025Q1

REPORT INFORMATION
  Report Type: Spontaneous
  Country: US (occurrence: US)
  Receive Date: 20240307
  Receipt Date: 20250107
  Transmission Date: 20250409
  Serious: No
  Sender: SUNOVION
  Company Number: US-MYOVANT SCIENCES GMBH-2023MYSCI1100652

PATIENT

DRUGS (1)
  1. ORGOVYX [Suspect]
     Active Substance: RELUGOLIX
     Indication: Prostate cancer
     Route: 048
     Dates: start: 202307

REACTIONS (5)
  - Tinnitus [Unknown]
  - Feeling abnormal [Unknown]
  - Hot flush [Unknown]
  - Hyperhidrosis [Unknown]
  - Therapy interrupted [Unknown]
